FAERS Safety Report 11004547 (Version 1)
Quarter: 2015Q2

REPORT INFORMATION
  Report Type: Report from Study
  Country: BR (occurrence: BR)
  Receive Date: 20150409
  Receipt Date: 20150409
  Transmission Date: 20150821
  Serious: Yes (Hospitalization, Other)
  Sender: FDA-Public Use
  Company Number: BR-ROCHE-1220860

PATIENT
  Age: 53 Year
  Sex: Female
  Weight: 52 kg

DRUGS (17)
  1. MABTHERA [Suspect]
     Active Substance: RITUXIMAB
     Route: 042
     Dates: start: 20121004
  2. MABTHERA [Suspect]
     Active Substance: RITUXIMAB
     Route: 042
     Dates: start: 20140925
  3. RIVOTRIL [Concomitant]
     Active Substance: CLONAZEPAM
  4. BROMOPRIDE [Concomitant]
     Active Substance: BROMOPRIDE
  5. MABTHERA [Suspect]
     Active Substance: RITUXIMAB
     Indication: RHEUMATOID ARTHRITIS
     Route: 042
     Dates: start: 20120306
  6. CRESTOR [Concomitant]
     Active Substance: ROSUVASTATIN CALCIUM
  7. MABTHERA [Suspect]
     Active Substance: RITUXIMAB
     Route: 042
     Dates: start: 20120321
  8. PREDNISONE. [Concomitant]
     Active Substance: PREDNISONE
  9. LYRICA [Concomitant]
     Active Substance: PREGABALIN
     Dosage: ADMINISTERED IN THE MORNING AND AT NIGHT
     Route: 065
  10. OMEPRAZOLE. [Concomitant]
     Active Substance: OMEPRAZOLE
  11. TRAMAL [Concomitant]
     Active Substance: TRAMADOL
  12. MOBILITY 2 [Concomitant]
  13. VONAU [Concomitant]
     Route: 065
  14. MABTHERA [Suspect]
     Active Substance: RITUXIMAB
     Route: 042
     Dates: start: 20140911
  15. LINSEED OIL [Concomitant]
     Active Substance: LINSEED OIL
  16. MABTHERA [Suspect]
     Active Substance: RITUXIMAB
     Route: 042
     Dates: start: 20120925
  17. PANTOPRAZOLE [Concomitant]
     Active Substance: PANTOPRAZOLE SODIUM

REACTIONS (9)
  - Joint effusion [Unknown]
  - Weight decreased [Not Recovered/Not Resolved]
  - Arthralgia [Unknown]
  - Hypersensitivity [Unknown]
  - Vomiting [Recovered/Resolved]
  - Erythema [Unknown]
  - Urinary tract infection [Unknown]
  - Cyst [Not Recovered/Not Resolved]
  - Urticaria [Unknown]

NARRATIVE: CASE EVENT DATE: 20150205
